FAERS Safety Report 8643198 (Version 2)
Quarter: 2012Q4

REPORT INFORMATION
  Report Type: 
  Country: ES (occurrence: ES)
  Receive Date: 20120629
  Receipt Date: 20121025
  Transmission Date: 20130627
  Serious: Yes (Hospitalization)
  Sender: FDA-Public Use
  Company Number: ES-UCBSA-060301

PATIENT
  Age: 79 Year
  Sex: Female

DRUGS (7)
  1. CIMZIA [Suspect]
     Indication: RHEUMATOID ARTHRITIS
     Route: 058
     Dates: start: 20120411
  2. SIMVASTATIN [Suspect]
     Indication: HYPERCHOLESTEROLAEMIA
     Dosage: UNKNOWN DOSE
     Route: 048
     Dates: start: 20120202
  3. DEFLAZACORT [Suspect]
     Indication: RHEUMATOID ARTHRITIS
     Dosage: 6 MG
     Dates: start: 20120202
  4. NIFEDIPINE [Concomitant]
  5. METAMIZOLE [Concomitant]
  6. CALCIUM SANDOZ [Concomitant]
     Dosage: 500 MG
  7. PROFER [Concomitant]
     Dosage: 40 MG

REACTIONS (2)
  - Pancreatic disorder [Recovered/Resolved]
  - Abdominal pain upper [Recovered/Resolved]
